FAERS Safety Report 9288449 (Version 1)
Quarter: 2013Q2

REPORT INFORMATION
  Report Type: Spontaneous
  Country: US (occurrence: US)
  Receive Date: 20130514
  Receipt Date: 20130514
  Transmission Date: 20140414
  Serious: Yes (Hospitalization)
  Sender: FDA-Public Use
  Company Number: US-ASTRAZENECA-2013SE32733

PATIENT
  Age: 17531 Day
  Sex: Male
  Weight: 87.4 kg

DRUGS (22)
  1. AMIFOSTINE [Suspect]
     Indication: BONE MARROW CONDITIONING REGIMEN
     Route: 042
     Dates: start: 20111029, end: 20111029
  2. MK-V212 [Suspect]
     Indication: PROPHYLAXIS
     Route: 058
     Dates: start: 20111018, end: 20111018
  3. MK-V212 [Suspect]
     Indication: PROPHYLAXIS
     Route: 058
     Dates: start: 20111130, end: 20111130
  4. MK-V212 [Suspect]
     Indication: PROPHYLAXIS
     Route: 058
     Dates: start: 20120104, end: 20120104
  5. MK-V212 [Suspect]
     Indication: PROPHYLAXIS
     Route: 058
     Dates: start: 20120206, end: 20120206
  6. CALCIUM CARBONATE [Concomitant]
     Dates: start: 20111012, end: 20111115
  7. MINERALS (UNSPECIFIED) + VITAMINS (UNSPECIFIED) [Concomitant]
     Dates: start: 20110407
  8. OMEGA-3 MARINE TRIGLYCERIDES [Concomitant]
     Dates: start: 20110411
  9. DAPSONE [Concomitant]
     Dates: start: 20111023, end: 20111030
  10. LYRICA [Concomitant]
     Dates: start: 20111006, end: 20120115
  11. ONDANSETRON [Concomitant]
     Dates: start: 20110927, end: 20111028
  12. ONDANSETRON [Concomitant]
     Dosage: (EXCEPT SYRUP)
     Dates: start: 20111010, end: 20111027
  13. ROBITUSSIN-DM [Concomitant]
     Dates: start: 20111009, end: 20111030
  14. VALACYCLOVIR HYDROCHLORIDE [Concomitant]
     Dates: start: 20110407, end: 20111103
  15. VIACTIV SOFT CALCIUM CHEWS [Concomitant]
     Dates: start: 20110419
  16. DIPHENHYDRAMINE HYDROCHLORIDE [Concomitant]
     Dates: start: 20111012, end: 20111101
  17. PROCHLORPERAZINE [Concomitant]
     Dates: start: 20111012, end: 20111104
  18. SUNSCREEN (UNSPECIFIED) [Concomitant]
     Dates: start: 20110407, end: 20120215
  19. HYDROMORPHONE [Concomitant]
     Dates: start: 20110930, end: 20120108
  20. FILGRASTIM [Concomitant]
     Dosage: (EXCEPT SYRUP)
     Dates: start: 20111010, end: 20111027
  21. CHOLECALCIFEROL [Concomitant]
     Dates: start: 20110407
  22. POTASSIUM PHOSPHATE, DIBASIC [Concomitant]
     Dosage: (EXCEPT SYRUP)
     Dates: start: 20111012, end: 20111030

REACTIONS (2)
  - Mucosal inflammation [Recovered/Resolved]
  - Atrial fibrillation [Recovered/Resolved]
